FAERS Safety Report 4873730-5 (Version None)
Quarter: 2006Q1

REPORT INFORMATION
  Report Type: 
  Country: None (occurrence: None)
  Receive Date: 20060106
  Receipt Date: 20051130
  Transmission Date: 20060701
  Serious: Yes (Disabling)
  Sender: FDA-Public Use
  Company Number: 2005AP06550

PATIENT
  Age: 29889 Day
  Sex: Female
  Weight: 47 kg

DRUGS (11)
  1. IRESSA [Suspect]
     Indication: LUNG ADENOCARCINOMA
     Route: 048
     Dates: start: 20051117, end: 20051129
  2. SELBEX [Concomitant]
     Indication: GASTRITIS
     Route: 048
     Dates: start: 20051102
  3. EXCELASE [Concomitant]
     Indication: GASTRITIS
     Route: 048
     Dates: start: 20051102
  4. MAGLAX [Concomitant]
     Indication: GASTRITIS
     Route: 048
     Dates: start: 20051102
  5. MUCOSOLVAN [Concomitant]
     Indication: SPUTUM RETENTION
     Route: 048
     Dates: start: 20051102
  6. RESPLEN [Concomitant]
     Indication: COUGH
     Route: 048
     Dates: start: 20051102
  7. VINCRISTINE SULFATE [Concomitant]
     Dosage: 3 COURSES
     Dates: start: 20000101
  8. ENDOXAN [Concomitant]
     Dosage: 3 COURSES
     Dates: start: 20000101
  9. ENDOXAN [Concomitant]
  10. DOXORUBICIN HCL [Concomitant]
     Dosage: 3 COURSES
     Dates: start: 20000101
  11. DOXORUBICIN HCL [Concomitant]

REACTIONS (4)
  - NASOPHARYNGITIS [None]
  - PNEUMONIA [None]
  - PNEUMOTHORAX [None]
  - RESPIRATORY FAILURE [None]
